FAERS Safety Report 8821865 (Version 2)
Quarter: 2012Q4

REPORT INFORMATION
  Report Type: 
  Country: JP (occurrence: JP)
  Receive Date: 20121002
  Receipt Date: 20121207
  Transmission Date: 20130627
  Serious: Yes (Hospitalization, Other)
  Sender: FDA-Public Use
  Company Number: JP-009507513-2012SP030085

PATIENT
  Age: 62 Year
  Sex: Male
  Weight: 67 kg

DRUGS (13)
  1. PEGINTRON [Suspect]
     Indication: HEPATITIS C
     Dosage: 1.5mcg/kg/week
     Route: 058
     Dates: start: 20120215
  2. REBETOL [Suspect]
     Indication: HEPATITIS C
     Dosage: 600 mg, QD
     Route: 048
     Dates: start: 20120215, end: 20120224
  3. REBETOL [Suspect]
     Dosage: 400 mg, QD
     Route: 048
     Dates: start: 20120225, end: 20120327
  4. REBETOL [Suspect]
     Dosage: 200 mg, QD
     Route: 048
     Dates: start: 20120328, end: 20120403
  5. REBETOL [Suspect]
     Dosage: 300 mg, QD
     Route: 048
     Dates: start: 20120404, end: 20120522
  6. REBETOL [Suspect]
     Dosage: 200 mg, qd
     Route: 048
     Dates: start: 20120523, end: 20120612
  7. REBETOL [Suspect]
     Dosage: 400 mg, qd
     Route: 048
     Dates: start: 20120613, end: 20120731
  8. REBETOL [Suspect]
     Dosage: 600 mg, qd
     Route: 048
     Dates: start: 20120801
  9. TELAVIC [Suspect]
     Indication: HEPATITIS C
     Dosage: 2250 mg, qd
     Route: 048
     Dates: start: 20120215, end: 20120221
  10. TELAVIC [Suspect]
     Dosage: 1500 mg, Once
     Route: 048
     Dates: start: 20120222, end: 20120509
  11. PARIET [Concomitant]
     Indication: DUODENAL ULCER
     Dosage: 10 UNK, UNK
     Route: 048
  12. PROMAC (POLAPREZINC) [Concomitant]
     Indication: DUODENAL ULCER
     Dosage: 150 mg, qd
     Route: 048
  13. HIRUDOID [Concomitant]
     Indication: PROPHYLAXIS
     Dosage: DOSE: PROPER QUANTITY, FORMULATION: OIT
     Route: 051
     Dates: start: 20120215, end: 20120731

REACTIONS (4)
  - Pancreatitis [Recovering/Resolving]
  - Anaemia [Recovered/Resolved]
  - Decreased appetite [Recovered/Resolved]
  - Dizziness [Recovered/Resolved]
